FAERS Safety Report 25431049 (Version 2)
Quarter: 2025Q2

REPORT INFORMATION
  Report Type: Report from Study
  Country: US (occurrence: US)
  Receive Date: 20250612
  Receipt Date: 20250619
  Transmission Date: 20250717
  Serious: Yes (Other)
  Sender: ABBVIE
  Company Number: US-ABBVIE-6274574

PATIENT
  Sex: Female

DRUGS (3)
  1. SKYRIZI [Suspect]
     Active Substance: RISANKIZUMAB-RZAA
     Indication: Crohn^s disease
     Route: 058
  2. BOTOX [Suspect]
     Active Substance: ONABOTULINUMTOXINA
     Indication: Torticollis
     Route: 065
  3. SKYRIZI [Suspect]
     Active Substance: RISANKIZUMAB-RZAA
     Indication: Crohn^s disease
     Route: 042
     Dates: start: 20240909

REACTIONS (17)
  - Lupus-like syndrome [Unknown]
  - Pyrexia [Unknown]
  - Arthritis [Unknown]
  - Pain in extremity [Unknown]
  - Fatigue [Unknown]
  - Muscular weakness [Unknown]
  - Torticollis [Unknown]
  - Arthralgia [Unknown]
  - Pain [Unknown]
  - Fistula [Unknown]
  - Therapeutic product effect decreased [Unknown]
  - Antinuclear antibody positive [Unknown]
  - Therapeutic product effect decreased [Unknown]
  - Oral pain [Unknown]
  - Gastrointestinal disorder [Unknown]
  - LE cells present [Unknown]
  - Rheumatic disorder [Unknown]
